FAERS Safety Report 9299299 (Version 1)
Quarter: 2013Q2

REPORT INFORMATION
  Report Type: Spontaneous
  Country: GB (occurrence: GB)
  Receive Date: 20130520
  Receipt Date: 20130520
  Transmission Date: 20140414
  Serious: Yes (Other)
  Sender: FDA-Public Use
  Company Number: PHHY2013GB049006

PATIENT
  Age: 59 Year
  Sex: Male
  Weight: 92.7 kg

DRUGS (2)
  1. SIMVASTATIN [Suspect]
     Dosage: 20 MG
     Route: 048
     Dates: start: 20121214, end: 20130426
  2. THYROXINE [Concomitant]

REACTIONS (4)
  - Iliotibial band syndrome [Unknown]
  - Discomfort [Unknown]
  - Arthralgia [Not Recovered/Not Resolved]
  - Tendonitis [Unknown]
